FAERS Safety Report 16918407 (Version 2)
Quarter: 2020Q1

REPORT INFORMATION
  Report Type: Report from Study
  Country: SE (occurrence: SE)
  Receive Date: 20191015
  Receipt Date: 20200310
  Transmission Date: 20200409
  Serious: Yes (Hospitalization)
  Sender: FDA-Public Use
  Company Number: SE-ROCHE-2168672

PATIENT

DRUGS (5)
  1. INTERFERON BETA NOS [Suspect]
     Active Substance: INTERFERON BETA
     Indication: MULTIPLE SCLEROSIS
     Route: 065
  2. RITUXIMAB. [Suspect]
     Active Substance: RITUXIMAB
     Indication: MULTIPLE SCLEROSIS
     Route: 065
  3. GLATIRAMER ACETATE. [Suspect]
     Active Substance: GLATIRAMER ACETATE
     Indication: MULTIPLE SCLEROSIS
     Route: 065
  4. FINGOLIMOD. [Suspect]
     Active Substance: FINGOLIMOD
     Indication: MULTIPLE SCLEROSIS
     Route: 065
  5. NATALIZUMAB [Suspect]
     Active Substance: NATALIZUMAB
     Indication: MULTIPLE SCLEROSIS
     Route: 065

REACTIONS (66)
  - Upper respiratory tract infection [Unknown]
  - Urinary tract infection [Unknown]
  - Q fever [Unknown]
  - Pneumonia haemophilus [Unknown]
  - Pneumonia [Unknown]
  - Chronic sinusitis [Unknown]
  - Furuncle [Unknown]
  - Carbuncle [Unknown]
  - Spondyloarthropathy [Unknown]
  - Gastrointestinal viral infection [Unknown]
  - Sepsis [Unknown]
  - Spirochaetal infection [Unknown]
  - Viral infection [Unknown]
  - Acute sinusitis [Unknown]
  - Anal abscess [Unknown]
  - Salpingitis [Unknown]
  - Herpes zoster [Unknown]
  - Chalazion [Unknown]
  - Tonsillitis [Unknown]
  - Pneumonia bacterial [Unknown]
  - Diverticulum intestinal [Unknown]
  - Oophoritis [Unknown]
  - Encephalomyelitis [Unknown]
  - Intentional product use issue [Unknown]
  - Off label use [Unknown]
  - Erysipelas [Unknown]
  - Dermatophytosis [Unknown]
  - Bronchitis [Unknown]
  - Jaw disorder [Unknown]
  - Skin infection [Unknown]
  - Cytomegalovirus infection [Unknown]
  - Infection [Unknown]
  - Large intestine infection [Unknown]
  - Pulmonary tuberculosis [Unknown]
  - Varicella [Unknown]
  - Peritonitis [Unknown]
  - Lymphangitis [Unknown]
  - Streptococcal sepsis [Unknown]
  - Pneumocystis jirovecii pneumonia [Unknown]
  - Hordeolum [Unknown]
  - Myelitis [Unknown]
  - Infectious pleural effusion [Unknown]
  - Herpes virus infection [Unknown]
  - Genital herpes [Unknown]
  - Haemorrhagic fever [Unknown]
  - Influenza [Unknown]
  - Pneumonia streptococcal [Unknown]
  - Subcutaneous abscess [Unknown]
  - Cellulitis [Unknown]
  - Tubulointerstitial nephritis [Unknown]
  - Cystitis [Unknown]
  - Urinary tract disorder [Unknown]
  - Vulvovaginal disorder [Unknown]
  - Encephalitis [Unknown]
  - Croup infectious [Unknown]
  - Epiglottitis [Unknown]
  - Gastrointestinal bacterial infection [Unknown]
  - Meningitis viral [Unknown]
  - Encephalitis viral [Unknown]
  - Progressive multifocal leukoencephalopathy [Unknown]
  - Gastroenteritis [Unknown]
  - Bacterial infection [Unknown]
  - Central nervous system viral infection [Unknown]
  - Candida infection [Unknown]
  - Rectal abscess [Unknown]
  - Pelvic inflammatory disease [Unknown]
